FAERS Safety Report 7506872-6 (Version None)
Quarter: 2011Q2

REPORT INFORMATION
  Report Type: 
  Country: None (occurrence: None)
  Receive Date: 20110526
  Receipt Date: 20110511
  Transmission Date: 20111010
  Serious: Yes (Other)
  Sender: FDA-Public Use
  Company Number: B0721862A

PATIENT
  Sex: Female

DRUGS (2)
  1. LAMOTRIGINE [Suspect]
     Route: 048
     Dates: start: 20080101
  2. KEPPRA [Suspect]
     Dosage: 250MG TWICE PER DAY
     Route: 048
     Dates: start: 20080101

REACTIONS (3)
  - DEPRESSION [None]
  - AGGRESSION [None]
  - ANGER [None]
